FAERS Safety Report 7699272-X (Version None)
Quarter: 2011Q3

REPORT INFORMATION
  Report Type: 
  Country: None (occurrence: None)
  Receive Date: 20110819
  Receipt Date: 20101221
  Transmission Date: 20111222
  Serious: Yes (Death, Hospitalization)
  Sender: FDA-Public Use
  Company Number: US-AMGEN-USASP2010001505

PATIENT

DRUGS (16)
  1. ZANTAC                             /00550801/ [Concomitant]
     Dosage: UNK
     Dates: start: 19911023, end: 19911023
  2. HYDREA [Concomitant]
     Dosage: 500 MG, QID
     Route: 048
     Dates: start: 19911023
  3. ERYTHROMYCIN [Concomitant]
     Dosage: UNK
     Dates: start: 19911017, end: 19911017
  4. AMPHOTERICIN B [Concomitant]
     Dosage: UNK
     Dates: start: 19911021, end: 19911023
  5. AMIKACIN [Concomitant]
     Dosage: UNK
     Dates: start: 19911007
  6. E-MYCIN 333 [Concomitant]
     Dosage: UNK
     Dates: start: 19911023, end: 19911023
  7. DEMEROL [Concomitant]
     Dosage: UNK
     Dates: start: 19911020, end: 19911023
  8. MORPHINE [Concomitant]
     Route: 042
  9. FORTAZ [Concomitant]
     Dosage: UNK
     Dates: start: 19911007, end: 19911024
  10. VISTARIL                           /00058402/ [Concomitant]
     Dosage: UNK
     Dates: start: 19911020, end: 19911023
  11. VANCOMYCIN [Concomitant]
     Dosage: UNK
     Dates: start: 19911011, end: 19911024
  12. FLAGYL [Concomitant]
     Dosage: UNK
     Dates: start: 19911017, end: 19911023
  13. NEUPOGEN [Suspect]
     Indication: PRODUCT USED FOR UNKNOWN INDICATION
     Dosage: 5.1 A?G/KG, QD
     Route: 058
     Dates: start: 19911011, end: 19911012
  14. SOLU-MEDROL [Concomitant]
     Dosage: UNK
     Dates: start: 19911023
  15. NEOMYCIN [Concomitant]
     Dosage: UNK
     Dates: start: 19911017, end: 19911017
  16. DIFLUCAN [Concomitant]
     Dosage: UNK
     Dates: start: 19911020, end: 19911024

REACTIONS (2)
  - LEUKOCYTOSIS [None]
  - CARDIO-RESPIRATORY ARREST [None]
